FAERS Safety Report 17292739 (Version 1)
Quarter: 2020Q1

REPORT INFORMATION
  Report Type: Report from Study
  Country: US (occurrence: US)
  Receive Date: 20200121
  Receipt Date: 20200121
  Transmission Date: 20200409
  Serious: Yes (Other)
  Sender: FDA-Public Use
  Company Number: US-BAYER-2019-205135

PATIENT
  Age: 52 Year
  Sex: Female

DRUGS (1)
  1. STIVARGA [Suspect]
     Active Substance: REGORAFENIB
     Indication: RECTAL CANCER
     Dosage: 80 MG, QD FOR 21 DAYS THEN 7 DAYS OFF
     Route: 048
     Dates: start: 20191029

REACTIONS (4)
  - Fatigue [Unknown]
  - Rash [Unknown]
  - Rash pruritic [Recovering/Resolving]
  - Off label use [None]

NARRATIVE: CASE EVENT DATE: 20191029
